FAERS Safety Report 10215331 (Version 1)
Quarter: 2014Q2

REPORT INFORMATION
  Report Type: Spontaneous
  Country: JP (occurrence: JP)
  Receive Date: 20140603
  Receipt Date: 20140603
  Transmission Date: 20141212
  Serious: Yes (Hospitalization)
  Sender: FDA-Public Use
  Company Number: PHHY2014JP065984

PATIENT
  Age: 24 Year
  Sex: Male

DRUGS (4)
  1. CICLOSPORIN [Suspect]
     Indication: LUPUS NEPHRITIS
     Route: 048
  2. CICLOSPORIN [Suspect]
     Indication: OFF LABEL USE
  3. PREDNISONE [Suspect]
     Indication: LUPUS NEPHRITIS
  4. PREDNISONE [Suspect]
     Indication: OFF LABEL USE

REACTIONS (4)
  - Nephropathy [Recovering/Resolving]
  - Lupus nephritis [Recovering/Resolving]
  - Renal impairment [Recovering/Resolving]
  - Proteinuria [Recovering/Resolving]
